FAERS Safety Report 15390494 (Version 1)
Quarter: 2018Q3

REPORT INFORMATION
  Report Type: Spontaneous
  Country: JP (occurrence: JP)
  Receive Date: 20180917
  Receipt Date: 20180917
  Transmission Date: 20181010
  Serious: Yes (Other)
  Sender: FDA-Public Use
  Company Number: JP-ACCORD-071672

PATIENT
  Age: 68 Year
  Sex: Female

DRUGS (5)
  1. FLUOROURACIL. [Suspect]
     Active Substance: FLUOROURACIL
  2. FOLINIC ACID [Suspect]
     Active Substance: LEUCOVORIN
  3. BEVACIZUMAB. [Suspect]
     Active Substance: BEVACIZUMAB
  4. OXALIPLATIN. [Suspect]
     Active Substance: OXALIPLATIN
  5. IRINOTECAN [Suspect]
     Active Substance: IRINOTECAN

REACTIONS (3)
  - Hypersensitivity [Unknown]
  - Pulmonary embolism [Recovered/Resolved]
  - Oedema peripheral [Recovered/Resolved]
